FAERS Safety Report 9458775 (Version 1)
Quarter: 2013Q3

REPORT INFORMATION
  Report Type: Spontaneous
  Country: US (occurrence: US)
  Receive Date: 20130814
  Receipt Date: 20130814
  Transmission Date: 20140515
  Serious: Yes (Hospitalization)
  Sender: FDA-Public Use
  Company Number: US-SANOFI-AVENTIS-2013SA080536

PATIENT
  Age: 84 Year
  Sex: Female

DRUGS (4)
  1. LANTUS [Suspect]
     Indication: TYPE 2 DIABETES MELLITUS
     Route: 065
  2. LANTUS SOLOSTAR [Suspect]
     Indication: TYPE 2 DIABETES MELLITUS
     Dosage: DOSE:65 UNIT(S)
     Route: 065
  3. METFORMIN [Concomitant]
     Route: 065
  4. HUMALOG [Concomitant]

REACTIONS (3)
  - Brain neoplasm [Unknown]
  - Eye disorder [Unknown]
  - Diabetic neuropathy [Unknown]
